FAERS Safety Report 6632683-X (Version None)
Quarter: 2010Q1

REPORT INFORMATION
  Report Type: 
  Country: None (occurrence: None)
  Receive Date: 20100312
  Receipt Date: 20100302
  Transmission Date: 20100710
  Serious: Yes (Other)
  Sender: FDA-Public Use
  Company Number: TR-ELI_LILLY_AND_COMPANY-TR201003000964

PATIENT
  Age: 28 Year
  Sex: Female

DRUGS (4)
  1. HUMULIN N [Suspect]
     Dosage: 6 U, EACH MORNING
     Route: 058
     Dates: start: 20091101
  2. HUMULIN N [Suspect]
     Dosage: 6 U, EACH EVENING
     Route: 058
     Dates: start: 20091101
  3. IRON [Concomitant]
     Dosage: UNK, DAILY (1/D)
     Route: 048
     Dates: start: 20091101
  4. FOLIC ACID [Concomitant]
     Dosage: UNK, DAILY (1/D)

REACTIONS (2)
  - ABORTION SPONTANEOUS [None]
  - DRUG EXPOSURE DURING PREGNANCY [None]
